FAERS Safety Report 10836422 (Version 1)
Quarter: 2015Q1

REPORT INFORMATION
  Report Type: Spontaneous
  Country: US (occurrence: None)
  Receive Date: 20150218
  Receipt Date: 20150218
  Transmission Date: 20150721
  Serious: Yes (Hospitalization, Other)
  Sender: FDA-Public Use
  Company Number: US-ZYDUS-006576

PATIENT
  Age: 57 Year
  Sex: Male

DRUGS (5)
  1. AMOXICILLIN W/CLAVULANIC ACID (AMOXICILLIN W/CLAVULANIC ACID) [Concomitant]
  2. LEVOFLOXACINE (LEVOFLOXACIN) [Suspect]
     Active Substance: LEVOFLOXACIN
     Route: 048
  3. CIPROFLOXACIN (CIPROFLOXACIN) [Suspect]
     Active Substance: CIPROFLOXACIN
  4. GENTAMICIN (GENTAMICIN) [Concomitant]
     Active Substance: GENTAMICIN
  5. DUTASTERIDE (DUTASTERIDE) [Concomitant]

REACTIONS (11)
  - Bacteriuria [None]
  - Post procedural infection [None]
  - Meningitis [None]
  - Testicular swelling [None]
  - Ischaemia [None]
  - Testicular disorder [None]
  - Testicular pain [None]
  - Bacteraemia [None]
  - Orchitis [None]
  - Escherichia infection [None]
  - Scrotal swelling [None]
